FAERS Safety Report 17259985 (Version 4)
Quarter: 2020Q2

REPORT INFORMATION
  Report Type: Report from Study
  Country: None (occurrence: CO)
  Receive Date: 20200111
  Receipt Date: 20200505
  Transmission Date: 20200713
  Serious: Yes (Hospitalization, Other)
  Sender: FDA-Public Use
  Company Number: CO-ABBVIE-20K-036-3229187-00

PATIENT
  Age: 19 Year
  Sex: Female
  Weight: 55 kg

DRUGS (3)
  1. HUMIRA [Suspect]
     Active Substance: ADALIMUMAB
     Indication: CROHN^S DISEASE
     Route: 058
     Dates: start: 20191110
  2. BUSCAPINA (HYOSCINE BUTYLBROMIDE) [Suspect]
     Active Substance: BUTYLSCOPOLAMINE BROMIDE
     Indication: PRODUCT USED FOR UNKNOWN INDICATION
     Route: 065
  3. ANEMIDOX [CYANOCOBALAMIN\FOLIC ACID\NIACINAMIDE\PYRIDOXINE\RIBOFLAVIN\THIAMINE] [Suspect]
     Active Substance: CYANOCOBALAMIN\FOLIC ACID\NIACINAMIDE\PYRIDOXINE\RIBOFLAVIN\THIAMINE
     Indication: ANAEMIA
     Route: 065

REACTIONS (14)
  - Urinary tract infection [Recovering/Resolving]
  - Pain [Recovering/Resolving]
  - Dyschezia [Not Recovered/Not Resolved]
  - Haemoglobin abnormal [Unknown]
  - Crohn^s disease [Not Recovered/Not Resolved]
  - Headache [Unknown]
  - Drug ineffective [Unknown]
  - Anaemia [Unknown]
  - Maternal exposure during pregnancy [Unknown]
  - Bacterial pyelonephritis [Recovered/Resolved]
  - Haemorrhage [Recovering/Resolving]
  - Tachycardia [Recovering/Resolving]
  - Dehydration [Unknown]
  - Dizziness [Unknown]

NARRATIVE: CASE EVENT DATE: 202001
